FAERS Safety Report 10151850 (Version 1)
Quarter: 2014Q2

REPORT INFORMATION
  Report Type: Spontaneous
  Country: AR (occurrence: AR)
  Receive Date: 20140505
  Receipt Date: 20140505
  Transmission Date: 20141212
  Serious: Yes (Other)
  Sender: FDA-Public Use
  Company Number: AR-ROCHE-1391192

PATIENT
  Sex: Female

DRUGS (1)
  1. XOLAIR [Suspect]
     Indication: PRODUCT USED FOR UNKNOWN INDICATION
     Route: 058

REACTIONS (1)
  - Anaphylactic reaction [Unknown]
